FAERS Safety Report 4372859-8 (Version None)
Quarter: 2004Q2

REPORT INFORMATION
  Report Type: 
  Country: None (occurrence: None)
  Receive Date: 20040603
  Receipt Date: 20040518
  Transmission Date: 20050107
  Serious: Yes (Hospitalization)
  Sender: FDA-Public Use
  Company Number: A01200401919

PATIENT
  Age: 57 Year
  Sex: Female

DRUGS (5)
  1. ELOXATIN [Suspect]
     Indication: METASTASES TO LIVER
     Dosage: 10 MG/M2 Q3W  INTRAVENOUS NOS
     Route: 042
     Dates: start: 20040419, end: 20040419
  2. ELOXATIN [Suspect]
     Indication: METASTASES TO LUNG
     Dosage: 10 MG/M2 Q3W  INTRAVENOUS NOS
     Route: 042
     Dates: start: 20040419, end: 20040419
  3. ELOXATIN [Suspect]
     Indication: RECTAL CANCER METASTATIC
     Dosage: 10 MG/M2 Q3W  INTRAVENOUS NOS
     Route: 042
     Dates: start: 20040419, end: 20040419
  4. FLUOROURACIL [Concomitant]
  5. LEUCOVORIN CALCIUM [Concomitant]

REACTIONS (12)
  - ALANINE AMINOTRANSFERASE INCREASED [None]
  - ASPARTATE AMINOTRANSFERASE INCREASED [None]
  - BLOOD ALKALINE PHOSPHATASE INCREASED [None]
  - COOMBS DIRECT TEST POSITIVE [None]
  - DISSEMINATED INTRAVASCULAR COAGULATION [None]
  - EPISTAXIS [None]
  - EVAN'S SYNDROME [None]
  - GASTRIC HAEMORRHAGE [None]
  - GINGIVAL BLEEDING [None]
  - HAEMOLYTIC ANAEMIA [None]
  - INTESTINAL STOMA SITE BLEEDING [None]
  - THROMBOCYTOPENIA [None]
